FAERS Safety Report 9130304 (Version 1)
Quarter: 2013Q1

REPORT INFORMATION
  Report Type: Spontaneous
  Country: US (occurrence: US)
  Receive Date: 20130228
  Receipt Date: 20130228
  Transmission Date: 20140127
  Serious: Yes (Hospitalization, Other)
  Sender: FDA-Public Use
  Company Number: US-TEVA-388045USA

PATIENT
  Age: 37 None
  Sex: Female
  Weight: 56.75 kg

DRUGS (1)
  1. PARAGARD 380A [Suspect]
     Indication: CONTRACEPTION
     Route: 015
     Dates: start: 20120518, end: 20130130

REACTIONS (5)
  - Pregnancy with contraceptive device [Unknown]
  - Abortion spontaneous [Recovered/Resolved]
  - Influenza like illness [Recovered/Resolved]
  - Drug ineffective [Not Recovered/Not Resolved]
  - Lymphadenopathy [Recovered/Resolved]
